FAERS Safety Report 10886722 (Version 1)
Quarter: 2015Q1

REPORT INFORMATION
  Report Type: Report from Study
  Country: NZ (occurrence: NZ)
  Receive Date: 20150304
  Receipt Date: 20150304
  Transmission Date: 20150721
  Serious: Yes (Hospitalization)
  Sender: FDA-Public Use
  Company Number: PHHY2015NZ025387

PATIENT
  Sex: Male

DRUGS (3)
  1. CLOZARIL [Suspect]
     Active Substance: CLOZAPINE
     Indication: SCHIZOPHRENIA
     Dosage: UNK
     Route: 048
     Dates: start: 20021001
  2. CLOZARIL [Suspect]
     Active Substance: CLOZAPINE
     Dosage: UNK (RETITRATION AT HOSPITAL)  (WAS ON CLOZAPINE WHEN ADMITTED AND ON DISCHARGE)
     Route: 048
  3. CLOZARIL [Suspect]
     Active Substance: CLOZAPINE
     Dosage: UNK (RESTARTED THE CLOZARIL)
     Route: 048

REACTIONS (2)
  - Malaise [Unknown]
  - Blood creatine phosphokinase increased [Unknown]
